FAERS Safety Report 8405874-5 (Version None)
Quarter: 2012Q2

REPORT INFORMATION
  Report Type: 
  Country: None (occurrence: None)
  Receive Date: 20120604
  Receipt Date: 20120531
  Transmission Date: 20120825
  Serious: Yes (Hospitalization)
  Sender: FDA-Public Use
  Company Number: GB-BAYER-2012-048903

PATIENT
  Age: 21 Year
  Sex: Female
  Weight: 82 kg

DRUGS (1)
  1. MIRENA [Suspect]
     Dosage: UNK

REACTIONS (3)
  - BLINDNESS [None]
  - HEADACHE [None]
  - INTRACRANIAL PRESSURE INCREASED [None]
